FAERS Safety Report 9605866 (Version 1)
Quarter: 2013Q4

REPORT INFORMATION
  Report Type: Spontaneous
  Country: BR (occurrence: BR)
  Receive Date: 20131008
  Receipt Date: 20131008
  Transmission Date: 20140711
  Serious: Yes (Other)
  Sender: FDA-Public Use
  Company Number: PHHY2013BR112582

PATIENT
  Age: 1 Month
  Sex: Female
  Weight: 4 kg

DRUGS (6)
  1. VOLTAREN [Suspect]
     Dosage: UNK UKN, UNK
  2. MOTILIUM ^JANSSEN-CILAG^ [Concomitant]
     Dosage: UNK UKN, UNK
     Dates: start: 20131002
  3. AD-TIL [Concomitant]
     Indication: VITAMIN SUPPLEMENTATION
     Dosage: UNK UKN, UNK
  4. LABEL [Concomitant]
     Indication: GASTROOESOPHAGEAL REFLUX DISEASE
     Dosage: UNK UKN, UNK
     Dates: start: 20131002
  5. REDOXON [Concomitant]
     Indication: VITAMIN SUPPLEMENTATION
     Dosage: UNK UKN, UNK
  6. LUFTAL [Concomitant]
     Dosage: UNK UKN, UNK

REACTIONS (12)
  - Gastrooesophageal reflux disease [Not Recovered/Not Resolved]
  - Rash erythematous [Not Recovered/Not Resolved]
  - Vomiting [Not Recovered/Not Resolved]
  - Pain [Not Recovered/Not Resolved]
  - Hypersomnia [Not Recovered/Not Resolved]
  - Dark circles under eyes [Not Recovered/Not Resolved]
  - Insomnia [Not Recovered/Not Resolved]
  - Irritability [Not Recovered/Not Resolved]
  - Exposure during breast feeding [Unknown]
  - Crying [Not Recovered/Not Resolved]
  - Dyspnoea [Not Recovered/Not Resolved]
  - Yellow skin [Not Recovered/Not Resolved]
